FAERS Safety Report 18286113 (Version 1)
Quarter: 2020Q3

REPORT INFORMATION
  Report Type: Spontaneous
  Country: US (occurrence: US)
  Receive Date: 20200919
  Receipt Date: 20200919
  Transmission Date: 20201103
  Serious: No
  Sender: FDA-Public Use
  Company Number: US-TEVA-2020-US-1828856

PATIENT
  Age: 74 Year
  Sex: Female

DRUGS (5)
  1. LISINOPRIL?HCTZ [Concomitant]
     Active Substance: HYDROCHLOROTHIAZIDE\LISINOPRIL
     Dosage: DOUBLE DOSE
     Route: 065
  2. GRANIX [Suspect]
     Active Substance: TBO-FILGRASTIM
     Route: 065
     Dates: start: 20200905
  3. LISINOPRIL?HCTZ [Concomitant]
     Active Substance: HYDROCHLOROTHIAZIDE\LISINOPRIL
     Indication: BLOOD PRESSURE ABNORMAL
     Dosage: 20MG?12.5MG
     Route: 065
  4. GRANIX [Suspect]
     Active Substance: TBO-FILGRASTIM
     Indication: PRODUCT USED FOR UNKNOWN INDICATION
     Route: 065
     Dates: start: 20200903
  5. GRANIX [Suspect]
     Active Substance: TBO-FILGRASTIM
     Route: 065
     Dates: start: 20200904

REACTIONS (1)
  - Blood pressure increased [Not Recovered/Not Resolved]

NARRATIVE: CASE EVENT DATE: 20200907
